FAERS Safety Report 23467247 (Version 2)
Quarter: 2024Q2

REPORT INFORMATION
  Report Type: Spontaneous
  Country: US (occurrence: US)
  Receive Date: 20240201
  Receipt Date: 20240416
  Transmission Date: 20240716
  Serious: No
  Sender: FDA-Public Use
  Company Number: US-PFIZER INC-PV202400013824

PATIENT
  Age: 72 Year
  Sex: Female
  Weight: 55.782 kg

DRUGS (1)
  1. LEVOTHYROXINE SODIUM [Suspect]
     Active Substance: LEVOTHYROXINE SODIUM
     Indication: Autoimmune thyroiditis
     Dosage: 75 UG, 1X/DAY

REACTIONS (2)
  - Bone pain [Recovered/Resolved]
  - Off label use [Unknown]
